FAERS Safety Report 20416310 (Version 1)
Quarter: 2022Q1

REPORT INFORMATION
  Report Type: Spontaneous
  Country: US (occurrence: None)
  Receive Date: 20220201
  Receipt Date: 20220201
  Transmission Date: 20220423
  Serious: Yes (Hospitalization)
  Sender: FDA-Public Use
  Company Number: None

PATIENT
  Age: 65 Year
  Sex: Male

DRUGS (2)
  1. ATEZOLIZUMAB [Suspect]
     Active Substance: ATEZOLIZUMAB
     Dates: start: 20211206
  2. ETOPOSIDE [Suspect]
     Active Substance: ETOPOSIDE
     Dates: start: 20211206

REACTIONS (9)
  - Nausea [None]
  - Vomiting [None]
  - Illness [None]
  - Foaming at mouth [None]
  - Hypophagia [None]
  - Oropharyngeal pain [None]
  - Dysphagia [None]
  - Asthenia [None]
  - Anaemia [None]

NARRATIVE: CASE EVENT DATE: 20211220
